FAERS Safety Report 4891257-1 (Version None)
Quarter: 2006Q1

REPORT INFORMATION
  Report Type: 
  Country: None (occurrence: None)
  Receive Date: 20060125
  Receipt Date: 20051205
  Transmission Date: 20060701
  Serious: Yes (Hospitalization)
  Sender: FDA-Public Use
  Company Number: FR-ROCHE-427555

PATIENT
  Age: 65 Year
  Sex: Female
  Weight: 88 kg

DRUGS (13)
  1. DACLIZUMAB [Suspect]
     Route: 042
     Dates: start: 20050816, end: 20050816
  2. DACLIZUMAB [Suspect]
     Route: 042
     Dates: start: 20050830, end: 20050830
  3. MYCOPHENOLATE MOFETIL [Suspect]
     Route: 048
     Dates: start: 20050816, end: 20051013
  4. MYCOPHENOLATE MOFETIL [Suspect]
     Route: 048
     Dates: start: 20051014, end: 20051126
  5. MYCOPHENOLATE MOFETIL [Suspect]
     Route: 048
     Dates: start: 20051206
  6. SOLU-MEDROL [Suspect]
     Route: 048
     Dates: start: 20050816
  7. CYCLOSPORINE [Suspect]
     Route: 048
     Dates: start: 20050819
  8. MOPRAL [Concomitant]
     Dates: start: 20050816
  9. BACTRIM [Concomitant]
     Dates: start: 20050820
  10. EPO [Concomitant]
     Dates: start: 20050820
  11. TARDYFERON [Concomitant]
     Dates: start: 20051103
  12. CARDENSIEL [Concomitant]
  13. SODIUM BICARBONATE [Concomitant]
     Dates: end: 20051124

REACTIONS (1)
  - CYTOMEGALOVIRUS INFECTION [None]
